FAERS Safety Report 10228779 (Version 1)
Quarter: 2014Q2

REPORT INFORMATION
  Report Type: Spontaneous
  Country: US (occurrence: US)
  Receive Date: 20140610
  Receipt Date: 20140610
  Transmission Date: 20141212
  Serious: Yes (Hospitalization)
  Sender: FDA-Public Use
  Company Number: US-BAYER-2014-081828

PATIENT
  Age: 66 Year
  Sex: Male

DRUGS (9)
  1. ACETYLSALICYLIC ACID({=100 MG) [Suspect]
     Indication: CARDIAC VENTRICULAR THROMBOSIS
     Dosage: 162 MG, QD
     Route: 048
  2. ACETYLSALICYLIC ACID({=100 MG) [Suspect]
     Indication: VENTRICULAR ASSIST DEVICE INSERTION
     Dosage: DOSE DECREASED
  3. ACETYLSALICYLIC ACID({=100 MG) [Suspect]
     Indication: CARDIAC VENTRICULAR THROMBOSIS
     Dosage: DAILY
  4. ACETYLSALICYLIC ACID({=100 MG) [Suspect]
     Indication: CARDIAC VENTRICULAR THROMBOSIS
     Dosage: UNKNOWN
  5. HEPARIN [Concomitant]
     Indication: THROMBOSIS PROPHYLAXIS
     Dosage: POST OPERATIVE DAYS  1-7
  6. HEPARIN [Concomitant]
     Indication: VENTRICULAR ASSIST DEVICE INSERTION
  7. WARFARIN [Suspect]
     Indication: THROMBOSIS PROPHYLAXIS
     Dosage: POST-OPERATIVE DAYS 2-7
  8. WARFARIN [Suspect]
     Indication: VENTRICULAR ASSIST DEVICE INSERTION
  9. MILRINONE [Concomitant]
     Indication: CARDIAC FAILURE

REACTIONS (3)
  - Gastrointestinal haemorrhage [Recovered/Resolved]
  - Melaena [Recovered/Resolved]
  - Haemoglobin decreased [Recovered/Resolved]
